FAERS Safety Report 7768223-1 (Version None)
Quarter: 2011Q3

REPORT INFORMATION
  Report Type: 
  Country: None (occurrence: None)
  Receive Date: 20110922
  Receipt Date: 20110922
  Transmission Date: 20111222
  Serious: Yes (Other)
  Sender: FDA-Public Use
  Company Number: None

PATIENT
  Age: 65 Year
  Sex: Female
  Weight: 56.245 kg

DRUGS (1)
  1. PROTONIX [Suspect]
     Indication: BARRETT'S OESOPHAGUS
     Dosage: 1
     Dates: start: 20030131, end: 20110921

REACTIONS (4)
  - DEHYDRATION [None]
  - GLOSSODYNIA [None]
  - DRY MOUTH [None]
  - SALIVA ALTERED [None]
